FAERS Safety Report 10471770 (Version 1)
Quarter: 2014Q3

REPORT INFORMATION
  Report Type: Report from Study
  Country: US (occurrence: US)
  Receive Date: 20140924
  Receipt Date: 20140924
  Transmission Date: 20150326
  Serious: Yes (Other)
  Sender: FDA-Public Use
  Company Number: US-ROCHE-1461021

PATIENT
  Age: 20 Year
  Sex: Female
  Weight: 83.2 kg

DRUGS (4)
  1. KEPPRA [Concomitant]
     Active Substance: LEVETIRACETAM
     Route: 065
  2. ESTRADIOL TRANSDERMAL [Concomitant]
     Route: 065
  3. NUTROPIN AQ [Suspect]
     Active Substance: SOMATROPIN
     Indication: HYPOPITUITARISM
     Route: 058
  4. LEVOTHYROXINE [Concomitant]
     Active Substance: LEVOTHYROXINE
     Route: 048

REACTIONS (17)
  - Faeces hard [Unknown]
  - Convulsion [Unknown]
  - Somnolence [Unknown]
  - Menorrhagia [Unknown]
  - Contusion [Unknown]
  - Joint range of motion decreased [Unknown]
  - Rectal haemorrhage [Unknown]
  - Weight decreased [Unknown]
  - Amnesia [Unknown]
  - Visual impairment [Unknown]
  - Arthralgia [Unknown]
  - Joint swelling [Unknown]
  - Pallor [Unknown]
  - Vaginal haemorrhage [Unknown]
  - Speech disorder [Unknown]
  - Fatigue [Unknown]
  - Decreased appetite [Unknown]

NARRATIVE: CASE EVENT DATE: 201304
